FAERS Safety Report 21214864 (Version 1)
Quarter: 2022Q3

REPORT INFORMATION
  Report Type: Spontaneous
  Country: FR (occurrence: FR)
  Receive Date: 20220816
  Receipt Date: 20220816
  Transmission Date: 20221026
  Serious: Yes (Disabling)
  Sender: FDA-Public Use
  Company Number: None

PATIENT
  Age: 62 Year
  Sex: Female
  Weight: 52.5 kg

DRUGS (4)
  1. LOVENOX [Suspect]
     Active Substance: ENOXAPARIN SODIUM
     Indication: Factor II mutation
     Dosage: 4000 IU BID
     Route: 058
     Dates: start: 202007, end: 202105
  2. INNOHEP [Suspect]
     Active Substance: TINZAPARIN SODIUM
     Indication: Factor II mutation
     Dosage: 6000 IU QD
     Route: 058
     Dates: start: 202105
  3. CALCIUM CARBONATE\CHOLECALCIFEROL [Concomitant]
     Active Substance: CALCIUM CARBONATE\CHOLECALCIFEROL
  4. CHOLECALCIFEROL [Concomitant]
     Active Substance: CHOLECALCIFEROL

REACTIONS (1)
  - Bone fissure [Not Recovered/Not Resolved]

NARRATIVE: CASE EVENT DATE: 20200101
